APPROVED DRUG PRODUCT: TRICLOS
Active Ingredient: TRICLOFOS SODIUM
Strength: 750MG
Dosage Form/Route: TABLET;ORAL
Application: N016809 | Product #002
Applicant: SANOFI AVENTIS US LLC
Approved: Approved Prior to Jan 1, 1982 | RLD: No | RS: No | Type: DISCN